FAERS Safety Report 24091008 (Version 1)
Quarter: 2024Q3

REPORT INFORMATION
  Report Type: Spontaneous
  Country: US (occurrence: None)
  Receive Date: 20240713
  Receipt Date: 20240713
  Transmission Date: 20241016
  Serious: Yes (Other)
  Sender: Public
  Company Number: None

PATIENT
  Age: 69 Year
  Sex: Male
  Weight: 69.3 kg

DRUGS (11)
  1. GABAPENTIN [Suspect]
     Active Substance: GABAPENTIN
     Indication: Osteoarthritis
     Dosage: 1 CAPSULE 1 OR 2 A WEEK ORAL
     Route: 048
     Dates: start: 20230610, end: 20240710
  2. GABAPENTIN [Suspect]
     Active Substance: GABAPENTIN
     Indication: Myalgia
  3. OMEPRAZOLE [Concomitant]
  4. ATORVASTATIN [Concomitant]
  5. CELECOXIB [Concomitant]
     Active Substance: CELECOXIB
  6. VITAMIN D [Concomitant]
     Active Substance: VITAMIN D NOS
  7. IRON [Concomitant]
  8. multivitamin [Concomitant]
  9. ant-acid [Concomitant]
  10. SIMETHICONE [Concomitant]
  11. UNSPECIFIED INGREDIENT [Concomitant]
     Active Substance: UNSPECIFIED INGREDIENT

REACTIONS (1)
  - Pain in extremity [None]

NARRATIVE: CASE EVENT DATE: 20240711
